FAERS Safety Report 6120187-2 (Version None)
Quarter: 2009Q1

REPORT INFORMATION
  Report Type: 
  Country: None (occurrence: None)
  Receive Date: 20090316
  Receipt Date: 20090205
  Transmission Date: 20090719
  Serious: No
  Sender: FDA-Public Use
  Company Number: US-ABBOTT-09P-163-0502359-00

PATIENT
  Sex: Male
  Weight: 86.26 kg

DRUGS (1)
  1. TRILIPIX [Suspect]
     Indication: BLOOD TRIGLYCERIDES INCREASED
     Route: 048
     Dates: start: 20090101, end: 20090205

REACTIONS (3)
  - PAIN OF SKIN [None]
  - RASH PRURITIC [None]
  - SKIN BURNING SENSATION [None]
